FAERS Safety Report 4700641-8 (Version None)
Quarter: 2005Q2

REPORT INFORMATION
  Report Type: 
  Country: None (occurrence: None)
  Receive Date: 20050627
  Receipt Date: 20050614
  Transmission Date: 20051028
  Serious: Yes (Other)
  Sender: FDA-Public Use
  Company Number: 2005088689

PATIENT
  Age: 61 Year
  Sex: Male

DRUGS (14)
  1. NIFEDIPINE [Suspect]
     Indication: MYOCARDIAL ISCHAEMIA
     Dosage: 40 MG, ORAL
     Route: 048
     Dates: start: 19920101
  2. GLYCERYL TRINITRATE PATCH (GLYCERYL TRINITRATE) [Suspect]
     Indication: MYOCARDIAL ISCHAEMIA
     Dosage: AS NEEDED; ORAL
     Route: 048
  3. DILTIAZEM HYDROCHLORIDE [Suspect]
     Indication: MYOCARDIAL ISCHAEMIA
     Dosage: 90 MG; ORAL
     Route: 048
     Dates: start: 19920101
  4. ZANTAC 150 [Suspect]
     Indication: MYOCARDIAL ISCHAEMIA
     Dosage: 300 MG; ORAL
     Route: 048
     Dates: start: 19920101
  5. ASPIRIN [Suspect]
     Indication: MYOCARDIAL ISCHAEMIA
     Dosage: 100 MG; ORAL
     Route: 048
     Dates: start: 19920101
  6. AMIODARONE HCL [Suspect]
     Indication: CARDIAC FAILURE CONGESTIVE
     Dosage: 400 MG; ORAL
     Route: 048
     Dates: start: 19940427, end: 19940608
  7. ISOSORBIDE 5-MONONITRATE (ISOSORBIDE MONONITRATE) [Suspect]
     Indication: MYOCARDIAL ISCHAEMIA
     Dosage: 60 MG; ORAL
     Route: 048
     Dates: start: 19920101
  8. CAPTOPRIL [Suspect]
     Indication: MYOCARDIAL ISCHAEMIA
     Dosage: 37 MG; ORAL
     Route: 048
     Dates: start: 19920101
  9. FUROSEMIDE [Suspect]
     Indication: MYOCARDIAL ISCHAEMIA
     Dosage: 80 MG; ORAL
     Route: 048
     Dates: start: 19920101
  10. POTASSIUM CHLORIDE [Suspect]
     Indication: MYOCARDIAL ISCHAEMIA
     Dosage: 1.2 GRAM; ORAL
     Route: 048
     Dates: start: 19920101
  11. ALBUTEROL SULFATE HFA [Suspect]
     Indication: EMPHYSEMA
     Dosage: 12 PUFFS, INHALATION
     Route: 055
     Dates: start: 19920101
  12. ATACAND [Concomitant]
  13. GLUTRIL (GLIBORNURIDE) [Concomitant]
  14. MINIPRESS [Concomitant]

REACTIONS (1)
  - CRYPTOGENIC ORGANIZING PNEUMONIA [None]
